FAERS Safety Report 6141917-X (Version None)
Quarter: 2009Q1

REPORT INFORMATION
  Report Type: 
  Country: None (occurrence: None)
  Receive Date: 20090331
  Receipt Date: 20090331
  Transmission Date: 20090719
  Serious: Yes (Hospitalization, Other)
  Sender: FDA-Public Use
  Company Number: None

PATIENT
  Age: 70 Year
  Sex: Female
  Weight: 81.6475 kg

DRUGS (1)
  1. NITROFURANTOIN [Suspect]
     Indication: HERPES ZOSTER
     Dosage: 1 CAPSULE 1X DAY AT BEDTIME PO
     Route: 048
     Dates: start: 20051227, end: 20060127

REACTIONS (7)
  - GAIT DISTURBANCE [None]
  - LIVER DISORDER [None]
  - LIVER FUNCTION TEST ABNORMAL [None]
  - NEUROPATHY PERIPHERAL [None]
  - PAIN [None]
  - WALKING AID USER [None]
  - YELLOW SKIN [None]
